FAERS Safety Report 5971075-3 (Version None)
Quarter: 2008Q4

REPORT INFORMATION
  Report Type: 
  Country: None (occurrence: None)
  Receive Date: 20081128
  Receipt Date: 20081106
  Transmission Date: 20090506
  Serious: Yes (Hospitalization)
  Sender: FDA-Public Use
  Company Number: GR-ROCHE-595985

PATIENT
  Age: 70 Year
  Sex: Male
  Weight: 72 kg

DRUGS (9)
  1. METHOXY POLYETHYLENE GLYCOL-EPOETIN BETA [Suspect]
     Dosage: DOSE: 120 MCG, FORM REPORTED AS PFS
     Route: 042
     Dates: start: 20081008
  2. EPOETIN NOS [Concomitant]
  3. RENAGEL [Concomitant]
     Dates: start: 20060920
  4. OMEPRAZOLE [Concomitant]
     Dates: start: 20060111
  5. DAFLON [Concomitant]
     Dosage: TDD: 1000
     Dates: start: 20080922
  6. ZOCOR [Concomitant]
     Dates: start: 20060111
  7. VENOFER [Concomitant]
     Dates: start: 20080711
  8. MIXTARD 30 HM [Concomitant]
  9. TICLODONE [Concomitant]
     Dates: start: 20080414, end: 20081106

REACTIONS (1)
  - NEPHROLITHIASIS [None]
